FAERS Safety Report 19226769 (Version 4)
Quarter: 2022Q3

REPORT INFORMATION
  Report Type: Report from Study
  Country: JP (occurrence: JP)
  Receive Date: 20210506
  Receipt Date: 20220817
  Transmission Date: 20221027
  Serious: Yes (Hospitalization)
  Sender: FDA-Public Use
  Company Number: JP-ONO-2019JP014757

PATIENT
  Age: 27 Year
  Sex: Male
  Weight: 47 kg

DRUGS (10)
  1. ETELCALCETIDE [Suspect]
     Active Substance: ETELCALCETIDE
     Indication: Hyperparathyroidism secondary
     Dosage: 5 MILLIGRAM, Q56H
     Route: 010
     Dates: start: 20190218, end: 20190311
  2. ETELCALCETIDE [Suspect]
     Active Substance: ETELCALCETIDE
     Dosage: 2.5 MILLIGRAM, Q56H
     Route: 010
     Dates: start: 20190313, end: 20190415
  3. ETELCALCETIDE [Suspect]
     Active Substance: ETELCALCETIDE
     Dosage: 2.5 MILLIGRAM, Q84H
     Route: 010
     Dates: start: 20190419, end: 20201116
  4. ETELCALCETIDE [Suspect]
     Active Substance: ETELCALCETIDE
     Dosage: 2.5 MILLIGRAM, QWK
     Route: 010
     Dates: start: 20201123
  5. OXAROL [Suspect]
     Active Substance: MAXACALCITOL
     Indication: Product used for unknown indication
     Dosage: 2.5 MICROGRAM
     Route: 065
     Dates: end: 20190208
  6. OXAROL [Suspect]
     Active Substance: MAXACALCITOL
     Dosage: 5 MICROGRAM
     Route: 065
     Dates: start: 20190211, end: 20190304
  7. ROCALTROL [Suspect]
     Active Substance: CALCITRIOL
     Indication: Product used for unknown indication
     Dosage: 1 MICROGRAM, Q56H
     Route: 065
     Dates: start: 20190306, end: 20190619
  8. ROCALTROL [Suspect]
     Active Substance: CALCITRIOL
     Dosage: 0.5 MICROGRAM, Q56H
     Route: 065
     Dates: start: 20190621
  9. FOSRENOL [Concomitant]
     Active Substance: LANTHANUM CARBONATE
     Dosage: 1500 MILLIGRAM, QD
     Route: 065
  10. P-tol [Concomitant]
     Dosage: 1500 MILLIGRAM, QD
     Route: 065

REACTIONS (2)
  - COVID-19 [Recovered/Resolved]
  - Hypocalcaemia [Recovered/Resolved]

NARRATIVE: CASE EVENT DATE: 20190225
